FAERS Safety Report 9855568 (Version 3)
Quarter: 2015Q2

REPORT INFORMATION
  Report Type: Spontaneous
  Country: US (occurrence: US)
  Receive Date: 20140130
  Receipt Date: 20150630
  Transmission Date: 20150821
  Serious: Yes (Death, Hospitalization, Other)
  Sender: FDA-Public Use
  Company Number: US-009507513-1401USA011977

PATIENT
  Sex: Female

DRUGS (1)
  1. FOSAMAX [Suspect]
     Active Substance: ALENDRONATE SODIUM
     Indication: OSTEOPOROSIS
     Dosage: 10 MG, QD
     Route: 048
     Dates: start: 1995, end: 200012

REACTIONS (5)
  - Femur fracture [Unknown]
  - Sepsis [Fatal]
  - Respiratory disorder [Unknown]
  - Fall [Unknown]
  - Periprosthetic fracture [Unknown]

NARRATIVE: CASE EVENT DATE: 20001124
